FAERS Safety Report 13652737 (Version 1)
Quarter: 2017Q2

REPORT INFORMATION
  Report Type: Spontaneous
  Country: IT (occurrence: IT)
  Receive Date: 20170614
  Receipt Date: 20170614
  Transmission Date: 20170830
  Serious: Yes (Other)
  Sender: FDA-Public Use
  Company Number: IT-JNJFOC-20151208752

PATIENT

DRUGS (2)
  1. INFLIXIMAB, RECOMBINANT [Suspect]
     Active Substance: INFLIXIMAB
     Indication: PSORIATIC ARTHROPATHY
     Route: 042
  2. INFLIXIMAB, RECOMBINANT [Suspect]
     Active Substance: INFLIXIMAB
     Indication: SPONDYLOARTHROPATHY
     Route: 042

REACTIONS (8)
  - Neoplasm malignant [Unknown]
  - Infusion related reaction [Unknown]
  - Tuberculosis [Unknown]
  - Drug ineffective [Unknown]
  - Skin disorder [Unknown]
  - Infection [Unknown]
  - Cardiovascular disorder [Unknown]
  - Blood disorder [Unknown]
